FAERS Safety Report 18076938 (Version 1)
Quarter: 2020Q3

REPORT INFORMATION
  Report Type: Spontaneous
  Country: CA (occurrence: CA)
  Receive Date: 20200727
  Receipt Date: 20200727
  Transmission Date: 20201103
  Serious: Yes (Death)
  Sender: FDA-Public Use
  Company Number: CA-PFIZER INC-2015424285

PATIENT
  Age: 59 Year
  Sex: Male

DRUGS (7)
  1. XELJANZ [Suspect]
     Active Substance: TOFACITINIB CITRATE
     Dosage: 5 MG, 2X/DAY
     Route: 048
     Dates: start: 2018
  2. XELJANZ [Suspect]
     Active Substance: TOFACITINIB CITRATE
     Indication: RHEUMATOID ARTHRITIS
     Dosage: 5 MG, 2X/DAY
     Route: 048
     Dates: start: 20151116, end: 201601
  3. ARAVA [Suspect]
     Active Substance: LEFLUNOMIDE
     Indication: RHEUMATOID ARTHRITIS
     Dosage: 20 MG, 1X/DAY
     Dates: start: 201406
  4. METHOTREXATE. [Concomitant]
     Active Substance: METHOTREXATE
     Indication: RHEUMATOID ARTHRITIS
     Dosage: 20 MG, WEEKLY (1/WEEK)
  5. XELJANZ [Suspect]
     Active Substance: TOFACITINIB CITRATE
     Dosage: 1 DF, 1X/DAY (1 PILL A DAY)
  6. LEFLUNOMIDE. [Concomitant]
     Active Substance: LEFLUNOMIDE
     Indication: RHEUMATOID ARTHRITIS
     Dosage: 20 MG, 1X/DAY
     Dates: start: 201406
  7. SIMPONI [Suspect]
     Active Substance: GOLIMUMAB
     Dosage: 50 MG, MONTHLY
     Route: 058
     Dates: start: 201608, end: 201807

REACTIONS (7)
  - Drug ineffective [Unknown]
  - Hyperhidrosis [Not Recovered/Not Resolved]
  - Rhinorrhoea [Unknown]
  - Nasal congestion [Unknown]
  - Sensitivity to weather change [Unknown]
  - Death [Fatal]
  - Abdominal pain upper [Unknown]
